APPROVED DRUG PRODUCT: CYCLOSPORINE
Active Ingredient: CYCLOSPORINE
Strength: 100MG
Dosage Form/Route: CAPSULE;ORAL
Application: A210721 | Product #003 | TE Code: AB1
Applicant: APOTEX INC
Approved: Jul 10, 2019 | RLD: No | RS: No | Type: RX